FAERS Safety Report 24662916 (Version 1)
Quarter: 2024Q4

REPORT INFORMATION
  Report Type: Spontaneous
  Country: US (occurrence: US)
  Receive Date: 20241126
  Receipt Date: 20241126
  Transmission Date: 20250115
  Serious: No
  Sender: GLAXOSMITHKLINE
  Company Number: US-GSK-US2024AMR134520

PATIENT

DRUGS (2)
  1. BENLYSTA [Suspect]
     Active Substance: BELIMUMAB
     Indication: Product used for unknown indication
     Dosage: UNK UNK, MO
     Dates: start: 2018
  2. BENLYSTA [Suspect]
     Active Substance: BELIMUMAB
     Dosage: UNK UNK, WE

REACTIONS (5)
  - Rash macular [Unknown]
  - Injection site erythema [Unknown]
  - Injection site pain [Unknown]
  - Injection site pruritus [Unknown]
  - Sensitive skin [Unknown]
